FAERS Safety Report 15963584 (Version 2)
Quarter: 2019Q2

REPORT INFORMATION
  Report Type: Spontaneous
  Country: US (occurrence: US)
  Receive Date: 20190214
  Receipt Date: 20190408
  Transmission Date: 20190711
  Serious: No
  Sender: FDA-Public Use
  Company Number: US-PFIZER INC-2018498548

PATIENT
  Age: 55 Year
  Sex: Female

DRUGS (14)
  1. DOCETAXEL. [Suspect]
     Active Substance: DOCETAXEL
     Dosage: 134 MG, CYCLIC (EVERY THREE WEEKS, 06 CYCLES)
     Dates: end: 20140820
  2. DOCETAXEL. [Suspect]
     Active Substance: DOCETAXEL
     Dosage: 116 MG, CYCLIC (EVERY THREE WEEKS, 06 CYCLES)
  3. TAXOTERE [Suspect]
     Active Substance: DOCETAXEL
     Dosage: 116 MG, CYCLIC (EVERY THREE WEEKS, 06 CYCLES)
  4. PARAPLATIN [Concomitant]
     Active Substance: CARBOPLATIN
     Indication: CHEMOTHERAPY
     Dosage: UNK, CYCLIC (06 CYCLES)
  5. DOCETAXEL ACCORD [Suspect]
     Active Substance: DOCETAXEL
     Indication: BREAST CANCER FEMALE
     Dosage: 107 MG, CYCLIC (EVERY THREE WEEKS, 06 CYCLES)
     Dates: start: 20140430
  6. DOCETAXEL ACCORD [Suspect]
     Active Substance: DOCETAXEL
     Dosage: 116 MG, CYCLIC (EVERY THREE WEEKS, 06 CYCLES)
  7. LIPITOR [Concomitant]
     Active Substance: ATORVASTATIN CALCIUM
     Dosage: UNK
     Dates: start: 2007, end: 2017
  8. AGGRENOX [Concomitant]
     Active Substance: ASPIRIN\DIPYRIDAMOLE
     Dosage: UNK
     Dates: start: 2007
  9. DOCETAXEL. [Suspect]
     Active Substance: DOCETAXEL
     Indication: BREAST CANCER FEMALE
     Dosage: 107 MG, CYCLIC (EVERY THREE WEEKS, 06 CYCLES)
     Dates: start: 20140430
  10. TAXOTERE [Suspect]
     Active Substance: DOCETAXEL
     Indication: BREAST CANCER FEMALE
     Dosage: 107 MG, CYCLIC (EVERY THREE WEEKS, 06 CYCLES)
     Dates: start: 20140430
  11. DOCETAXEL ACCORD [Suspect]
     Active Substance: DOCETAXEL
     Dosage: 134 MG, CYCLIC (EVERY THREE WEEKS, 06 CYCLES)
     Dates: end: 20140820
  12. XANAX [Concomitant]
     Active Substance: ALPRAZOLAM
     Dosage: UNK
     Dates: start: 2007
  13. METOPROLOL. [Concomitant]
     Active Substance: METOPROLOL
     Dosage: UNK
     Dates: start: 2007
  14. TAXOTERE [Suspect]
     Active Substance: DOCETAXEL
     Dosage: 134 MG, CYCLIC (EVERY THREE WEEKS, 06 CYCLES)
     Dates: end: 20140820

REACTIONS (6)
  - Hair colour changes [Not Recovered/Not Resolved]
  - Madarosis [Not Recovered/Not Resolved]
  - Anxiety [Unknown]
  - Hair texture abnormal [Not Recovered/Not Resolved]
  - Alopecia [Not Recovered/Not Resolved]
  - Hair disorder [Not Recovered/Not Resolved]

NARRATIVE: CASE EVENT DATE: 201504
